FAERS Safety Report 23415572 (Version 1)
Quarter: 2024Q1

REPORT INFORMATION
  Report Type: Spontaneous
  Country: CN (occurrence: None)
  Receive Date: 20240118
  Receipt Date: 20240118
  Transmission Date: 20240410
  Serious: Yes (Other)
  Sender: FDA-Public Use
  Company Number: CN-ROCHE-3489290

PATIENT
  Age: 50 Year
  Sex: Female
  Weight: 57 kg

DRUGS (15)
  1. GAZYVA [Suspect]
     Active Substance: OBINUTUZUMAB
     Indication: Follicular lymphoma
     Dosage: G+CHOP, D1, D8 AND 29/NOV/2022
     Route: 042
     Dates: start: 20221111
  2. GAZYVA [Suspect]
     Active Substance: OBINUTUZUMAB
     Dosage: G-CHOP, D1
     Route: 042
     Dates: start: 20221213
  3. GAZYVA [Suspect]
     Active Substance: OBINUTUZUMAB
     Dosage: G-CHOP +VENETOCLAX, D1
     Route: 042
     Dates: start: 20230224
  4. GAZYVA [Suspect]
     Active Substance: OBINUTUZUMAB
     Dosage: ON 27 MAR 2023, 26 APR 2023, 25 MAY 2023, 26 JUN 2023, G-CHOP
     Route: 042
     Dates: start: 20230327
  5. GAZYVA [Suspect]
     Active Substance: OBINUTUZUMAB
     Dosage: SINGLE AGENT, SUBSEQUENT DOSE OF 1000 MG OBINUTUZUMAB (G-CHOP) WAS ALSO ADMINISTERED ON 26/APR/2023,
     Route: 042
     Dates: start: 20230821
  6. CYCLOPHOSPHAMIDE [Concomitant]
     Active Substance: CYCLOPHOSPHAMIDE
     Indication: Follicular lymphoma
     Dosage: G-CHOP, D2, SUBSEQUENT DOSE OF 600 MG CYCLOPHOSPHAMIDE WAS ALSO ADMINISTERED ON 13/DEC/2022, 31/JAN/
     Dates: start: 20221111
  7. DOXORUBICIN HYDROCHLORIDE [Concomitant]
     Active Substance: DOXORUBICIN HYDROCHLORIDE
     Indication: Follicular lymphoma
     Dosage: G+CHOP, D2, D3. SUBSEQUENT DOSE OF 20 MG DOXORUBICIN HYDROCHLORIDE LIPOSOME WAS ALSO ADMINISTERED ON
     Dates: start: 20221111
  8. VINDESINE [Concomitant]
     Active Substance: VINDESINE
     Indication: Follicular lymphoma
     Dosage: G+CHOP D2. SUBSEQUENT DOSE OF 3 MG VINDESINE WAS ALSO ADMINISTERED ON 13/DEC/2022 (G-CHOP, D2), 31/J
     Dates: start: 20221111
  9. DEXAMETHASONE [Concomitant]
     Active Substance: DEXAMETHASONE
     Indication: Follicular lymphoma
     Dosage: G + CHOP, D2-6. SUBSEQUENT DOSE OF 10 MG DEXAMETHASONE WAS ALSO ADMINISTERED ON 13/DEC/2022 (G-CHOP,
     Dates: start: 20221111
  10. VENETOCLAX [Concomitant]
     Active Substance: VENETOCLAX
     Indication: Follicular lymphoma
     Route: 048
     Dates: start: 20230111
  11. VENETOCLAX [Concomitant]
     Active Substance: VENETOCLAX
     Route: 048
     Dates: start: 20230128
  12. VENETOCLAX [Concomitant]
     Active Substance: VENETOCLAX
     Dosage: CHOP + VENETOCLAX TABLETS
     Route: 048
     Dates: start: 20230131, end: 20230208
  13. VENETOCLAX [Concomitant]
     Active Substance: VENETOCLAX
     Dosage: G-CHOP + VENETOCLAX
     Route: 048
     Dates: start: 20230224
  14. HUMAN IMMUNOGLOBULIN G [Concomitant]
     Active Substance: HUMAN IMMUNOGLOBULIN G
  15. VALACYCLOVIR [Concomitant]
     Active Substance: VALACYCLOVIR HYDROCHLORIDE

REACTIONS (4)
  - Pneumonia [Unknown]
  - Myelosuppression [Recovered/Resolved]
  - COVID-19 [Unknown]
  - Marrow hyperplasia [Unknown]

NARRATIVE: CASE EVENT DATE: 20230101
